FAERS Safety Report 9394951 (Version 1)
Quarter: 2013Q3

REPORT INFORMATION
  Report Type: Spontaneous
  Country: US (occurrence: US)
  Receive Date: 20130711
  Receipt Date: 20130711
  Transmission Date: 20140515
  Serious: No
  Sender: FDA-Public Use
  Company Number: US-COVIDIEN/TYCO HEALTHCARE/MALLINCKRODT-T201203528

PATIENT
  Age: 37 Year
  Sex: Male
  Weight: 126.98 kg

DRUGS (3)
  1. ROXICODONE [Suspect]
     Indication: KYPHOSIS
     Dosage: 15 MG, 2 TABS TID
     Route: 048
     Dates: start: 20120922, end: 20120924
  2. MULTIVITAMIN                       /00831701/ [Concomitant]
     Dosage: UNK
  3. XANAX [Concomitant]
     Indication: ANXIETY
     Dosage: UNK

REACTIONS (5)
  - Chest discomfort [Recovered/Resolved]
  - Nausea [Recovered/Resolved]
  - Discomfort [Recovered/Resolved]
  - Heart rate increased [Recovered/Resolved]
  - Blood pressure increased [Recovered/Resolved]
